FAERS Safety Report 22057881 (Version 1)
Quarter: 2023Q1

REPORT INFORMATION
  Report Type: Spontaneous
  Country: CZ (occurrence: CZ)
  Receive Date: 20230303
  Receipt Date: 20230303
  Transmission Date: 20230417
  Serious: Yes (Other)
  Sender: FDA-Public Use
  Company Number: CZ-CELLTRION INC.-2023CZ004199

PATIENT

DRUGS (1)
  1. INFLIXIMAB [Suspect]
     Active Substance: INFLIXIMAB
     Indication: Crohn^s disease
     Dosage: UNK

REACTIONS (2)
  - Alpha haemolytic streptococcal infection [Recovered/Resolved]
  - Painful erection [Recovered/Resolved]

NARRATIVE: CASE EVENT DATE: 20230126
